FAERS Safety Report 25824963 (Version 1)
Quarter: 2025Q3

REPORT INFORMATION
  Report Type: Spontaneous
  Country: EU (occurrence: EU)
  Receive Date: 20250919
  Receipt Date: 20250919
  Transmission Date: 20251020
  Serious: Yes (Death, Other)
  Sender: PURDUE
  Company Number: EU-PURDUE-USA-2025-0320657

PATIENT
  Age: 19 Year
  Sex: Male

DRUGS (3)
  1. DRONABINOL [Suspect]
     Active Substance: DRONABINOL
     Indication: Product used for unknown indication
     Route: 048
  2. ALCOHOL [Suspect]
     Active Substance: ALCOHOL
     Indication: Product used for unknown indication
     Route: 065
  3. ALCOHOL [Suspect]
     Active Substance: ALCOHOL
     Indication: Product used for unknown indication
     Route: 065

REACTIONS (6)
  - Completed suicide [Fatal]
  - Road traffic accident [Unknown]
  - Substance use disorder [Unknown]
  - Drug screen positive [Unknown]
  - Insomnia [Unknown]
  - Affect lability [Unknown]
